FAERS Safety Report 8369264-6 (Version None)
Quarter: 2012Q2

REPORT INFORMATION
  Report Type: 
  Country: None (occurrence: None)
  Receive Date: 20120518
  Receipt Date: 20120514
  Transmission Date: 20120825
  Serious: Yes (Hospitalization, Other)
  Sender: FDA-Public Use
  Company Number: PHHY2012DE041670

PATIENT
  Sex: Male

DRUGS (1)
  1. CLOZAPINE [Suspect]
     Indication: SCHIZOPHRENIA
     Dosage: 525 MG, QD
     Dates: start: 20120201, end: 20120426

REACTIONS (4)
  - URINARY RETENTION [None]
  - URINARY TRACT INFECTION [None]
  - PNEUMONIA [None]
  - C-REACTIVE PROTEIN INCREASED [None]
